FAERS Safety Report 8080399-8 (Version None)
Quarter: 2012Q1

REPORT INFORMATION
  Report Type: 
  Country: None (occurrence: None)
  Receive Date: 20120130
  Receipt Date: 20120130
  Transmission Date: 20120608
  Serious: Yes (Death, Hospitalization)
  Sender: FDA-Public Use
  Company Number: JP-JNJFOC-20110809182

PATIENT
  Sex: Male
  Weight: 82 kg

DRUGS (28)
  1. COLCHICINE [Concomitant]
     Indication: BEHCET'S SYNDROME
     Route: 048
     Dates: end: 20110813
  2. DEPAS [Concomitant]
     Indication: INSOMNIA
     Dosage: 1 TAB
     Route: 048
     Dates: start: 20110731
  3. DECADRON [Concomitant]
     Indication: BEHCET'S SYNDROME
     Dosage: ROUTE: IM
     Route: 030
     Dates: start: 20110811, end: 20110812
  4. CEFMETAZOLE SODIUM [Concomitant]
     Route: 065
     Dates: start: 20110704
  5. REMICADE [Suspect]
     Indication: BEHCET'S SYNDROME
     Dosage: FIRST DOSE OF INFLIXIMAB
     Route: 042
     Dates: start: 20110720
  6. BETAMETHASONE [Concomitant]
     Indication: BEHCET'S SYNDROME
     Route: 048
     Dates: start: 20110714, end: 20110810
  7. SOLACET D [Concomitant]
     Dosage: 1 DF, ROUTE: DR
     Route: 065
     Dates: start: 20110729
  8. ALL OTHER THERAPEUTICS [Concomitant]
     Route: 065
  9. ZOLPIDEM [Concomitant]
     Indication: INSOMNIA
     Route: 048
     Dates: start: 20110720, end: 20110813
  10. ISOTONIC SODIUM CHLORIDE SOLUTION [Concomitant]
     Indication: ANALGESIC THERAPY
     Dosage: ROUTE: 051
     Route: 030
     Dates: start: 20110805, end: 20110815
  11. ALBUMIN (HUMAN) [Concomitant]
     Indication: HYPOALBUMINAEMIA
     Route: 042
     Dates: start: 20110813, end: 20110815
  12. DEPAS [Concomitant]
     Dosage: 1 TAB
     Route: 048
     Dates: start: 20110728, end: 20110728
  13. SOLDEM 3A [Concomitant]
     Dosage: 1 DF, ROUTE 051
     Dates: start: 20110802
  14. ATARAX [Concomitant]
     Indication: ANALGESIC THERAPY
     Dosage: 25 DF, ROUTE IM
     Route: 030
     Dates: start: 20110802, end: 20110802
  15. ATARAX [Concomitant]
     Dosage: 37.5 DF, ROUTE IM
     Route: 030
     Dates: start: 20110801, end: 20110801
  16. RESTAMIN [Concomitant]
     Indication: HYPERSENSITIVITY
     Dosage: 5 TAB
     Route: 048
     Dates: start: 20110720, end: 20110813
  17. ELENTAL [Concomitant]
     Dosage: 3 PAC
     Route: 048
     Dates: start: 20110720, end: 20110724
  18. DEPAS [Concomitant]
     Route: 048
     Dates: end: 20110813
  19. DEPAS [Concomitant]
     Dosage: 2 TAB
     Route: 048
     Dates: start: 20110729, end: 20110729
  20. VOLTAREN [Concomitant]
     Indication: ANALGESIC THERAPY
     Dosage: ROUTE: OD; 50G/ONE SUPPOSITORY
     Route: 065
     Dates: start: 20110731, end: 20110731
  21. ATARAX [Concomitant]
     Route: 030
     Dates: end: 20110805
  22. PENTASA [Concomitant]
     Indication: BEHCET'S SYNDROME
     Route: 048
     Dates: start: 20110705, end: 20110810
  23. ELENTAL [Concomitant]
     Indication: PARENTERAL NUTRITION
     Dosage: 2 PAC
     Route: 048
     Dates: start: 20110725
  24. POSTERISAN [Concomitant]
     Indication: HAEMORRHOIDS
     Dosage: ROUTE: 051; 2G/ONE SUPPOSITORY
     Route: 065
     Dates: start: 20110730, end: 20110811
  25. ATARAX [Concomitant]
     Dosage: 25 DF, ROUTE IM
     Route: 030
     Dates: start: 20110731, end: 20110731
  26. TPN ELECTROLYTES IN PLASTIC CONTAINER [Concomitant]
     Route: 065
     Dates: start: 20110730
  27. ELENTAL [Concomitant]
     Route: 048
     Dates: end: 20110729
  28. PENTAZOCINE LACTATE [Concomitant]
     Indication: ANALGESIC THERAPY
     Dosage: ROUTE: IM
     Route: 030
     Dates: start: 20110805, end: 20110815

REACTIONS (13)
  - RENAL FAILURE ACUTE [None]
  - BONE MARROW FAILURE [None]
  - AXONAL NEUROPATHY [None]
  - STAPHYLOCOCCAL BACTERAEMIA [None]
  - PAIN [None]
  - INFECTION [None]
  - HAEMORRHOIDAL HAEMORRHAGE [None]
  - DYSPNOEA [None]
  - BEHCET'S SYNDROME [None]
  - GASTRIC ULCER [None]
  - MULTI-ORGAN FAILURE [None]
  - HYPERKALAEMIA [None]
  - MALAISE [None]
